FAERS Safety Report 13646337 (Version 1)
Quarter: 2017Q2

REPORT INFORMATION
  Report Type: Spontaneous
  Country: JP (occurrence: JP)
  Receive Date: 20170613
  Receipt Date: 20170613
  Transmission Date: 20170830
  Serious: Yes (Other)
  Sender: FDA-Public Use
  Company Number: JP-ACCORD-052488

PATIENT
  Age: 64 Year
  Sex: Male

DRUGS (5)
  1. METHOTREXATE. [Suspect]
     Active Substance: METHOTREXATE
     Indication: POLYARTERITIS NODOSA
     Dosage: STARTED WITH 8 MG THEN 12 MG AND 16 MG/WEEK
     Dates: start: 201201
  2. CYCLOPHOSPHAMIDE/CYCLOPHOSPHAMIDE MONOHYDRATE [Suspect]
     Active Substance: CYCLOPHOSPHAMIDE
     Indication: POLYARTERITIS NODOSA
     Dosage: 50 TO 100 MG
     Route: 048
     Dates: start: 201409
  3. PREDNISOLONE. [Suspect]
     Active Substance: PREDNISOLONE
     Indication: POLYARTERITIS NODOSA
     Dates: start: 201201
  4. RITUXIMAB [Suspect]
     Active Substance: RITUXIMAB
     Indication: POLYARTERITIS NODOSA
  5. TACROLIMUS. [Suspect]
     Active Substance: TACROLIMUS
     Indication: POLYARTERITIS NODOSA
     Dosage: 2 TO 6 MG

REACTIONS (1)
  - Drug ineffective [Unknown]
